FAERS Safety Report 11087499 (Version 3)
Quarter: 2015Q2

REPORT INFORMATION
  Report Type: Spontaneous
  Country: BR (occurrence: BR)
  Receive Date: 20150504
  Receipt Date: 20150515
  Transmission Date: 20150821
  Serious: Yes (Other)
  Sender: FDA-Public Use
  Company Number: BR-PFIZER INC-2015150402

PATIENT
  Age: 45 Year
  Sex: Female
  Weight: 85 kg

DRUGS (2)
  1. LOSARTAN [Concomitant]
     Active Substance: LOSARTAN
     Dosage: STRENGHT 50 MG, 2 DOSE FORMS UNSPECIFIED FORMULATION (100 MG), DAILY
  2. SUTENT [Suspect]
     Active Substance: SUNITINIB MALATE
     Indication: METASTATIC RENAL CELL CARCINOMA
     Dosage: 50 MG, CYCLE 4X2
     Route: 048
     Dates: start: 20150412

REACTIONS (21)
  - Erysipelas [Unknown]
  - Oral pain [Unknown]
  - Burning sensation [Unknown]
  - Hypophagia [Not Recovered/Not Resolved]
  - Insomnia [Unknown]
  - Blood pressure increased [Unknown]
  - Skin exfoliation [Not Recovered/Not Resolved]
  - Weight decreased [Not Recovered/Not Resolved]
  - Rash macular [Unknown]
  - Skin discolouration [Unknown]
  - Pruritus [Unknown]
  - Rash [Not Recovered/Not Resolved]
  - Decreased immune responsiveness [Unknown]
  - Tooth disorder [Not Recovered/Not Resolved]
  - Wound [Not Recovered/Not Resolved]
  - Skin hypertrophy [Unknown]
  - Gingival pain [Unknown]
  - Noninfective gingivitis [Unknown]
  - Ear pain [Unknown]
  - Ocular hyperaemia [Unknown]
  - Stomatitis [Not Recovered/Not Resolved]

NARRATIVE: CASE EVENT DATE: 2015
